FAERS Safety Report 5063697-1 (Version None)
Quarter: 2006Q3

REPORT INFORMATION
  Report Type: 
  Country: None (occurrence: None)
  Receive Date: 20060724
  Receipt Date: 20060630
  Transmission Date: 20061208
  Serious: Yes (Hospitalization)
  Sender: FDA-Public Use
  Company Number: 2006RR-02923

PATIENT
  Age: 53 Year
  Sex: Male

DRUGS (8)
  1. SIMVASTATIN [Suspect]
     Indication: HYPERCHOLESTEROLAEMIA
     Dosage: SEE IMAGE, ORAL
     Route: 048
  2. CYCLOSPORINE [Suspect]
     Dosage: 225 MG, QD, ORAL
     Route: 048
  3. ITRACONAZOLE [Suspect]
     Indication: ASPERGILLOSIS
     Dosage: 100 MG, BID
  4. MYCOPHENOLATE MOFETIL [Suspect]
     Dosage: 2 G, QD, ORAL
     Route: 048
  5. PREDNISONE TAB [Concomitant]
  6. ACETYLSALICYLIC ACID SRT [Concomitant]
  7. LINOPRIL [Concomitant]
  8. THYRORMONE [Concomitant]

REACTIONS (4)
  - ASPERGILLOSIS [None]
  - DRUG INTERACTION [None]
  - RENAL FAILURE ACUTE [None]
  - RHABDOMYOLYSIS [None]
